FAERS Safety Report 5786368-2 (Version None)
Quarter: 2008Q2

REPORT INFORMATION
  Report Type: 
  Country: None (occurrence: None)
  Receive Date: 20080624
  Receipt Date: 20070806
  Transmission Date: 20081010
  Serious: No
  Sender: FDA-Public Use
  Company Number: US-ASTRAZENECA-2007UW18917

PATIENT
  Age: 7 Month
  Sex: Male

DRUGS (2)
  1. PULMICORT RESPULES [Suspect]
     Route: 055
  2. XOPENOX [Concomitant]

REACTIONS (2)
  - DECREASED APPETITE [None]
  - TONGUE BLACK HAIRY [None]
